FAERS Safety Report 13853564 (Version 2)
Quarter: 2018Q3

REPORT INFORMATION
  Report Type: Report from Study
  Country: US (occurrence: US)
  Receive Date: 20170810
  Receipt Date: 20180920
  Transmission Date: 20181010
  Serious: Yes (Other)
  Sender: FDA-Public Use
  Company Number: US-AMGEN-USASL2017118691

PATIENT
  Age: 42 Year
  Sex: Male

DRUGS (1)
  1. ENBREL [Suspect]
     Active Substance: ETANERCEPT
     Indication: ANKYLOSING SPONDYLITIS
     Dosage: UNK
     Route: 065

REACTIONS (8)
  - Mental status changes [Unknown]
  - Pyrexia [Unknown]
  - Immunodeficiency [Not Recovered/Not Resolved]
  - Back pain [Unknown]
  - Suicidal ideation [Not Recovered/Not Resolved]
  - Inappropriate schedule of drug administration [Unknown]
  - Depression [Not Recovered/Not Resolved]
  - Malaise [Unknown]

NARRATIVE: CASE EVENT DATE: 2017
